FAERS Safety Report 8431481-4 (Version None)
Quarter: 2012Q2

REPORT INFORMATION
  Report Type: 
  Country: None (occurrence: None)
  Receive Date: 20120607
  Receipt Date: 20120607
  Transmission Date: 20120825
  Serious: No
  Sender: FDA-Public Use
  Company Number: None

PATIENT
  Age: 52 Year
  Sex: Female
  Weight: 55.7924 kg

DRUGS (1)
  1. ESCITALOPRAM [Suspect]
     Indication: ANXIETY
     Dosage: AM .5  1;  PM .10  1
     Dates: start: 20120301

REACTIONS (6)
  - DYSSTASIA [None]
  - BRUXISM [None]
  - PALPITATIONS [None]
  - FUNGAL INFECTION [None]
  - PRODUCT SUBSTITUTION ISSUE [None]
  - TREMOR [None]
